FAERS Safety Report 7410773-1 (Version None)
Quarter: 2011Q2

REPORT INFORMATION
  Report Type: 
  Country: None (occurrence: None)
  Receive Date: 20110413
  Receipt Date: 20110405
  Transmission Date: 20111010
  Serious: Yes (Hospitalization)
  Sender: FDA-Public Use
  Company Number: BR-US-EMD SERONO, INC.-7052182

PATIENT
  Sex: Female

DRUGS (8)
  1. AMATO [Concomitant]
  2. RETEMIC [Concomitant]
  3. IBUPROFEN [Concomitant]
  4. LYRICA [Concomitant]
     Dosage: 75 MG MORNING / 150 MG EVENING
  5. PLAVIX [Concomitant]
  6. PANTOPRAZOLE [Concomitant]
  7. REBIF [Suspect]
     Indication: RELAPSING-REMITTING MULTIPLE SCLEROSIS
     Dates: start: 20090120
  8. VENAFILON [Concomitant]
     Dosage: 450 MG + 50 MG

REACTIONS (3)
  - FALL [None]
  - HEADACHE [None]
  - ASTHENIA [None]
